FAERS Safety Report 20345311 (Version 2)
Quarter: 2022Q4

REPORT INFORMATION
  Report Type: Report from Study
  Country: US (occurrence: US)
  Receive Date: 20220118
  Receipt Date: 20221107
  Transmission Date: 20230113
  Serious: Yes (Life-Threatening, Other)
  Sender: FDA-Public Use
  Company Number: US-TAKEDA-2022TUS002657

PATIENT
  Sex: Female

DRUGS (4)
  1. VORTIOXETINE [Suspect]
     Active Substance: VORTIOXETINE
     Indication: Product used for unknown indication
     Dosage: 10 MILLIGRAM, QD
     Route: 048
  2. VORTIOXETINE [Suspect]
     Active Substance: VORTIOXETINE
     Dosage: 20 MILLIGRAM
     Route: 065
  3. NORTRIPTYLINE [Concomitant]
     Active Substance: NORTRIPTYLINE
     Dosage: UNK
     Route: 065
  4. JUNEL FE 1/20 [Concomitant]
     Active Substance: ETHINYL ESTRADIOL\NORETHINDRONE ACETATE
     Dosage: UNK
     Route: 065

REACTIONS (7)
  - Suicidal ideation [Unknown]
  - Self-injurious ideation [Unknown]
  - Product use issue [Unknown]
  - Fatigue [Unknown]
  - Disturbance in attention [Unknown]
  - Depression [Unknown]
  - Dizziness [Unknown]
